FAERS Safety Report 8822585 (Version 1)
Quarter: 2012Q4

REPORT INFORMATION
  Report Type: 
  Country: TR (occurrence: TR)
  Receive Date: 20121003
  Receipt Date: 20121003
  Transmission Date: 20130627
  Serious: Yes (Death)
  Sender: FDA-Public Use
  Company Number: TR-ACTELION-A-CH2012-72177

PATIENT
  Age: 9 Year
  Sex: Female
  Weight: 20.5 kg

DRUGS (4)
  1. TRACLEER [Suspect]
     Indication: PULMONARY ARTERIAL HYPERTENSION
     Dosage: 62.5 mg, bid
     Route: 048
     Dates: start: 20110106
  2. TRACLEER [Suspect]
     Dosage: 31.25 mg, bid
     Route: 048
     Dates: start: 20061202
  3. VENTAVIS [Suspect]
     Indication: PULMONARY ARTERIAL HYPERTENSION
     Dosage: UNK
     Route: 055
     Dates: start: 20101018
  4. SILDENAFIL [Concomitant]
     Dosage: UNK
     Dates: start: 20050105

REACTIONS (2)
  - Pulmonary arterial hypertension [Fatal]
  - Disease progression [Fatal]
